FAERS Safety Report 13822630 (Version 1)
Quarter: 2017Q3

REPORT INFORMATION
  Report Type: Spontaneous
  Country: IT (occurrence: IT)
  Receive Date: 20170801
  Receipt Date: 20170801
  Transmission Date: 20171127
  Serious: Yes (Death, Life-Threatening, Hospitalization, Other)
  Sender: FDA-Public Use
  Company Number: IT-SUN PHARMACEUTICAL INDUSTRIES LTD-2015R1-106909

PATIENT
  Age: 58 Year
  Sex: Male

DRUGS (1)
  1. TEMOZOLOMIDE. [Suspect]
     Active Substance: TEMOZOLOMIDE
     Indication: PITUITARY CANCER METASTATIC
     Dosage: 160 MG/M2 DAILY FOR 5 D
     Route: 065

REACTIONS (2)
  - Death [Fatal]
  - Cerebral haemorrhage [Unknown]
